FAERS Safety Report 19667305 (Version 1)
Quarter: 2021Q3

REPORT INFORMATION
  Report Type: Spontaneous
  Country: GB (occurrence: GB)
  Receive Date: 20210806
  Receipt Date: 20210806
  Transmission Date: 20211014
  Serious: Yes (Other)
  Sender: FDA-Public Use
  Company Number: GB-ACCORD-234605

PATIENT
  Age: 30 Year
  Sex: Female
  Weight: 84.81 kg

DRUGS (2)
  1. SERTRALINE [Suspect]
     Active Substance: SERTRALINE HYDROCHLORIDE
     Indication: DEPRESSION
     Route: 048
     Dates: start: 2019
  2. CERAZETTE [Concomitant]
     Indication: ILL-DEFINED DISORDER

REACTIONS (2)
  - Dyspepsia [Recovered/Resolved]
  - Oesophageal spasm [Recovered/Resolved]

NARRATIVE: CASE EVENT DATE: 20200921
